FAERS Safety Report 16693224 (Version 1)
Quarter: 2019Q3

REPORT INFORMATION
  Report Type: Report from Study
  Country: US (occurrence: US)
  Receive Date: 20190812
  Receipt Date: 20190812
  Transmission Date: 20191004
  Serious: No
  Sender: FDA-Public Use
  Company Number: US-IPSEN BIOPHARMACEUTICALS, INC.-2018-19017

PATIENT
  Sex: Male

DRUGS (2)
  1. SOMATULINE DEPOT [Suspect]
     Active Substance: LANREOTIDE ACETATE
     Indication: ACROMEGALY
     Dosage: UPPER OUTER BUTTOCKS, ROTATE BETWEEN SIDES
     Route: 058
     Dates: start: 20160101, end: 201809
  2. SOMATULINE DEPOT [Suspect]
     Active Substance: LANREOTIDE ACETATE
     Dosage: INJECTION SITE: UNKNOWN
     Route: 058
     Dates: end: 20190114

REACTIONS (3)
  - Diarrhoea [Unknown]
  - Headache [Unknown]
  - Muscle spasms [Unknown]
